FAERS Safety Report 6301284-5 (Version None)
Quarter: 2009Q3

REPORT INFORMATION
  Report Type: 
  Country: None (occurrence: None)
  Receive Date: 20090807
  Receipt Date: 20090730
  Transmission Date: 20100115
  Serious: Yes (Hospitalization)
  Sender: FDA-Public Use
  Company Number: US-AVENTIS-200916690US

PATIENT
  Age: 51 Year
  Sex: Female

DRUGS (6)
  1. TAXOTERE [Suspect]
     Indication: SMALL CELL LUNG CANCER METASTATIC
     Route: 042
     Dates: start: 20090721, end: 20090721
  2. CISPLATIN [Suspect]
     Indication: SMALL CELL LUNG CANCER METASTATIC
     Route: 042
     Dates: start: 20090721, end: 20090721
  3. UNKNOWN DRUG [Concomitant]
     Dosage: DOSE: UNK
  4. ZOLOFT [Concomitant]
     Dosage: DOSE: UNK
  5. XANAX [Concomitant]
     Indication: ANXIETY
     Dosage: DOSE: UNK
  6. PERCOCET [Concomitant]
     Dosage: DOSE: UNK

REACTIONS (7)
  - ABDOMINAL PAIN UPPER [None]
  - CARDIAC ARREST [None]
  - COLD SWEAT [None]
  - HYPERHIDROSIS [None]
  - PULSE ABSENT [None]
  - RESPIRATORY RATE INCREASED [None]
  - UNRESPONSIVE TO STIMULI [None]
